FAERS Safety Report 5491112-2 (Version None)
Quarter: 2007Q4

REPORT INFORMATION
  Report Type: 
  Country: None (occurrence: None)
  Receive Date: 20071019
  Receipt Date: 20071005
  Transmission Date: 20080405
  Serious: Yes (Hospitalization)
  Sender: FDA-Public Use
  Company Number: CA-GENENTECH-249685

PATIENT
  Sex: Female
  Weight: 61.5 kg

DRUGS (11)
  1. BEVACIZUMAB [Suspect]
     Indication: COLON CANCER
     Dosage: 326 MG, Q2W
     Route: 042
     Dates: start: 20070404
  2. OXALIPLATIN [Suspect]
     Indication: COLON CANCER
     Dosage: 137 MG, Q2W
     Route: 042
     Dates: start: 20070404
  3. FLUOROURACIL [Suspect]
     Dosage: 650 MG, Q2W
     Route: 042
     Dates: start: 20070404
  4. LEUCOVORIN [Suspect]
     Indication: COLON CANCER
     Dosage: 320 MG, Q2W
     Dates: start: 20070404
  5. RABEPRAZOLE SODIUM [Concomitant]
     Indication: DRUG USE FOR UNKNOWN INDICATION
     Dates: start: 20071001
  6. ZOFRAN [Concomitant]
     Indication: DRUG USE FOR UNKNOWN INDICATION
     Dates: start: 20070404
  7. PROCHLORPERAZINE [Concomitant]
     Indication: DRUG USE FOR UNKNOWN INDICATION
     Dates: start: 20070404
  8. ALUMINUM HYDROXIDE GEL [Concomitant]
     Indication: DRUG USE FOR UNKNOWN INDICATION
     Dates: start: 20071001
  9. NORVASC [Concomitant]
     Indication: DRUG USE FOR UNKNOWN INDICATION
  10. BISOPROLOL FUMARATE [Concomitant]
     Indication: DRUG USE FOR UNKNOWN INDICATION
  11. RAMIPRIL [Concomitant]
     Indication: DRUG USE FOR UNKNOWN INDICATION
     Dates: start: 20070615

REACTIONS (3)
  - BLOOD POTASSIUM DECREASED [None]
  - DIARRHOEA [None]
  - VOMITING [None]
